FAERS Safety Report 8520887-0 (Version None)
Quarter: 2012Q3

REPORT INFORMATION
  Report Type: 
  Country: None (occurrence: None)
  Receive Date: 20120706
  Receipt Date: 20120626
  Transmission Date: 20120928
  Serious: Yes (Hospitalization)
  Sender: FDA-Public Use
  Company Number: DKLU1082765

PATIENT
  Age: 40 Year
  Sex: Female

DRUGS (13)
  1. LAMOTRIGINE [Suspect]
     Indication: EPILEPSY
     Dosage: 1 IN 1 D, ORAL : 2 IN 1 D, ORAL
     Route: 048
     Dates: start: 20120301
  2. FOLIC ACID [Concomitant]
  3. LEVOTHYROXINE SODIUM [Concomitant]
  4. VITAMINS NOS [Concomitant]
  5. ESCITALOPRAM [Concomitant]
  6. KEPPRA [Concomitant]
  7. NOOTROPYL (PIRACETAM) [Concomitant]
  8. ONFI [Suspect]
     Indication: EPILEPSY
     Dosage: 1 IN 1 D, ORAL
     Route: 048
     Dates: start: 20120301, end: 20120401
  9. CALCIUM CARBONATE/CITRIC ACID (CALCIUM CARBONATE) [Concomitant]
  10. FERROUS SULFATE TAB [Concomitant]
  11. ANTIEPILEPTICS [Concomitant]
  12. TRILEPTAL [Concomitant]
  13. NEXIUM [Concomitant]

REACTIONS (7)
  - LEUKOPENIA [None]
  - THROMBOCYTOPENIA [None]
  - STATUS EPILEPTICUS [None]
  - HYPERKALAEMIA [None]
  - LIVER INJURY [None]
  - CONDITION AGGRAVATED [None]
  - ATRIOVENTRICULAR BLOCK [None]
